FAERS Safety Report 24819229 (Version 1)
Quarter: 2025Q1

REPORT INFORMATION
  Report Type: Spontaneous
  Country: CA (occurrence: CA)
  Receive Date: 20250108
  Receipt Date: 20250108
  Transmission Date: 20250409
  Serious: Yes (Life-Threatening, Hospitalization, Other)
  Sender: PFIZER
  Company Number: CA-PFIZER INC-202500001740

PATIENT
  Age: 57 Year
  Sex: Female
  Weight: 98 kg

DRUGS (12)
  1. IBRANCE [Suspect]
     Active Substance: PALBOCICLIB
     Indication: Invasive breast carcinoma
     Dosage: 125 MG, 1X/DAY
     Route: 048
  2. ADRUCIL [Concomitant]
     Active Substance: FLUOROURACIL
  3. CHOLECALCIFEROL [Concomitant]
     Active Substance: CHOLECALCIFEROL
  4. CYTOXAN [Concomitant]
     Active Substance: CYCLOPHOSPHAMIDE
  5. EPIRUBICIN [Concomitant]
     Active Substance: EPIRUBICIN
  6. FEMARA [Concomitant]
     Active Substance: LETROZOLE
  7. HYDROMORPHONE [Concomitant]
     Active Substance: HYDROMORPHONE
  8. LORAZEPAM [Concomitant]
     Active Substance: LORAZEPAM
     Route: 065
  9. METOCLOPRAMIDE [Concomitant]
     Active Substance: METOCLOPRAMIDE
  10. MINERALS\VITAMINS [Concomitant]
     Active Substance: MINERALS\VITAMINS
  11. NYSTATIN [Concomitant]
     Active Substance: NYSTATIN
  12. ONDANSETRON [Concomitant]
     Active Substance: ONDANSETRON

REACTIONS (4)
  - Sepsis [Recovered/Resolved]
  - Staphylococcus test positive [Recovered/Resolved]
  - Thrombocytopenia [Recovered/Resolved]
  - Transfusion [Recovered/Resolved]
